FAERS Safety Report 19367634 (Version 1)
Quarter: 2021Q2

REPORT INFORMATION
  Report Type: Spontaneous
  Country: US (occurrence: US)
  Receive Date: 20210602
  Receipt Date: 20210602
  Transmission Date: 20210717
  Serious: No
  Sender: FDA-Public Use
  Company Number: US-ROCHE-2660756

PATIENT
  Age: 36 Year
  Sex: Female
  Weight: 70.37 kg

DRUGS (1)
  1. OCREVUS [Suspect]
     Active Substance: OCRELIZUMAB
     Indication: RELAPSING-REMITTING MULTIPLE SCLEROSIS
     Route: 042
     Dates: start: 201805

REACTIONS (5)
  - Hypoaesthesia [Recovered/Resolved]
  - Cognitive disorder [Recovered/Resolved]
  - Migraine with aura [Recovered/Resolved]
  - Product dose omission issue [Unknown]
  - Paraesthesia [Recovered/Resolved]

NARRATIVE: CASE EVENT DATE: 201911
